FAERS Safety Report 4781314-2 (Version None)
Quarter: 2005Q3

REPORT INFORMATION
  Report Type: 
  Country: None (occurrence: None)
  Receive Date: 20050928
  Receipt Date: 20050829
  Transmission Date: 20060218
  Serious: Yes (Disabling)
  Sender: FDA-Public Use
  Company Number: 2005SE04912

PATIENT
  Age: 28451 Day
  Sex: Male

DRUGS (8)
  1. ROSUVASTATIN [Suspect]
     Indication: CARDIAC FAILURE CHRONIC
     Route: 048
     Dates: start: 20031222, end: 20050531
  2. CORDARONE [Suspect]
     Indication: ATRIAL FIBRILLATION
     Route: 048
  3. COVERSYL [Concomitant]
     Indication: CARDIAC FAILURE
     Route: 048
  4. FUROSEMIDE [Concomitant]
     Indication: CARDIAC FAILURE
     Route: 048
  5. SPIRONOLACTONE [Concomitant]
     Indication: CARDIAC FAILURE
     Route: 048
  6. OMEPRAZOLE [Concomitant]
     Indication: PAIN PROPHYLAXIS
     Route: 048
  7. FOLIC ACID [Concomitant]
     Indication: MEDICAL DIET
     Route: 048
  8. SINTROMMITIS [Concomitant]
     Indication: THROMBOSIS PROPHYLAXIS
     Route: 048

REACTIONS (1)
  - PERIPHERAL SENSORY NEUROPATHY [None]
